FAERS Safety Report 21731533 (Version 3)
Quarter: 2022Q4

REPORT INFORMATION
  Report Type: Report from Study
  Country: DK (occurrence: None)
  Receive Date: 20221215
  Receipt Date: 20221228
  Transmission Date: 20230113
  Serious: Yes (Hospitalization)
  Sender: FDA-Public Use
  Company Number: DK-ROCHE-3242636

PATIENT
  Age: 59 Year
  Sex: Male

DRUGS (8)
  1. OBINUTUZUMAB [Suspect]
     Active Substance: OBINUTUZUMAB
     Indication: Chronic lymphocytic leukaemia
     Dosage: DATE OF LAST DOSE 25/AUG/2022
     Route: 042
     Dates: start: 20220201
  2. VENETOCLAX [Suspect]
     Active Substance: VENETOCLAX
     Indication: Chronic lymphocytic leukaemia
     Dosage: DATE OF LAST DOSE 10/DEC/2022
     Route: 048
     Dates: start: 20220303
  3. FILGRASTIM [Concomitant]
     Active Substance: FILGRASTIM
  4. CLARITHROMYCIN [Concomitant]
     Active Substance: CLARITHROMYCIN
  5. AZITHROMYCIN [Concomitant]
     Active Substance: AZITHROMYCIN
  6. FLUCONAZOLE [Concomitant]
     Active Substance: FLUCONAZOLE
  7. CIPROFLOXACIN [Concomitant]
     Active Substance: CIPROFLOXACIN
  8. AZITHROMYCIN [Concomitant]
     Active Substance: AZITHROMYCIN

REACTIONS (1)
  - COVID-19 [Recovered/Resolved]

NARRATIVE: CASE EVENT DATE: 20221210
